FAERS Safety Report 7334421-4 (Version None)
Quarter: 2011Q1

REPORT INFORMATION
  Report Type: 
  Country: None (occurrence: None)
  Receive Date: 20110307
  Receipt Date: 20110224
  Transmission Date: 20110831
  Serious: Yes (Other)
  Sender: FDA-Public Use
  Company Number: PHHY2011US16168

PATIENT
  Sex: Male

DRUGS (19)
  1. GILENYA [Suspect]
     Indication: MULTIPLE SCLEROSIS
     Dosage: 0.5 MG, QD
     Route: 048
     Dates: start: 20110113
  2. OXYCODONE [Concomitant]
     Dosage: 5-325 MG/1-2DAY
     Dates: start: 20100802
  3. ZANAFLEX [Concomitant]
     Dosage: 2 MG, UNK
     Dates: start: 20090301
  4. MIRALAX [Concomitant]
     Dosage: 17 G, QD
  5. ASCORBIC ACID [Concomitant]
     Dosage: UNK UKN, UNK
  6. GINKGO BILOBA LEAF EXTRACT [Concomitant]
     Dosage: 60 MG, QD
  7. AMBIEN [Concomitant]
     Dosage: 10 MG, QD
  8. CALCIUM [Concomitant]
     Dosage: UNK
  9. COD-LIVER OIL [Concomitant]
     Dosage: UNK
  10. FOSAMAX [Concomitant]
     Dosage: 70 MG/WEEK
     Dates: start: 20091223
  11. METHADONE HCL [Concomitant]
     Dosage: 5 MG, Q6H
     Dates: start: 20100120
  12. DIOVAN [Concomitant]
     Dosage: 80 MG
     Dates: start: 20101020
  13. COLACE [Concomitant]
     Dosage: 100 MG, QD
  14. VITAMIN D [Concomitant]
     Dosage: UNK UKN, UNK
  15. MECLIZINE [Concomitant]
     Dosage: 25 MG, QD
     Dates: start: 20070601
  16. BUSPAR [Concomitant]
     Dosage: 5 MG, PRN
  17. DIOVAN [Concomitant]
     Dosage: 160 MG, QD
     Dates: start: 20070531
  18. FAMOTIDINE [Concomitant]
     Dosage: 20 MG, QD
  19. MULTI-VITAMINS [Concomitant]
     Dosage: UNK

REACTIONS (1)
  - MASS [None]
